FAERS Safety Report 4324711-1 (Version None)
Quarter: 2004Q1

REPORT INFORMATION
  Report Type: 
  Country: None (occurrence: None)
  Receive Date: 20040325
  Receipt Date: 20040325
  Transmission Date: 20041129
  Serious: Yes (Other)
  Sender: FDA-Public Use
  Company Number: None

PATIENT
  Age: 63 Year
  Sex: Female
  Weight: 63.9572 kg

DRUGS (8)
  1. DILTIA XT 240 MG [Suspect]
     Indication: BLOOD PRESSURE
     Dosage: 1 QD
     Dates: start: 20040201, end: 20040207
  2. AMILORIDE [Concomitant]
  3. HCL AND HCTZ [Concomitant]
  4. XANAX [Concomitant]
  5. TRAVATAN [Concomitant]
  6. CELEBREX [Concomitant]
  7. ALBUTEROL [Concomitant]
  8. DILOCOR XR [Concomitant]

REACTIONS (2)
  - BLOOD PRESSURE INCREASED [None]
  - PHARMACEUTICAL PRODUCT COMPLAINT [None]
